FAERS Safety Report 10235847 (Version 2)
Quarter: 2014Q2

REPORT INFORMATION
  Report Type: Spontaneous
  Country: GB (occurrence: GB)
  Receive Date: 20140613
  Receipt Date: 20140613
  Transmission Date: 20141212
  Serious: Yes (Death)
  Sender: FDA-Public Use
  Company Number: GB-ASTRAZENECA-2014SE34232

PATIENT
  Sex: Female

DRUGS (2)
  1. SYMBICORT [Suspect]
     Route: 055
  2. BRICANYL [Suspect]
     Indication: ASTHMA
     Route: 055
     Dates: end: 201403

REACTIONS (2)
  - Neoplasm malignant [Fatal]
  - Drug ineffective [Recovered/Resolved]
